FAERS Safety Report 17532451 (Version 1)
Quarter: 2020Q1

REPORT INFORMATION
  Report Type: Spontaneous
  Country: US (occurrence: US)
  Receive Date: 20200312
  Receipt Date: 20200312
  Transmission Date: 20200409
  Serious: Yes (Hospitalization)
  Sender: FDA-Public Use
  Company Number: US-JNJFOC-20200301535

PATIENT
  Age: 74 Year
  Sex: Female
  Weight: 77.18 kg

DRUGS (3)
  1. DARZALEX [Suspect]
     Active Substance: DARATUMUMAB
     Indication: PLASMA CELL MYELOMA
     Dosage: VIAL??NDC/PRESCRIPTION NUMBER?5789450205/23600A/N/A
     Route: 042
     Dates: start: 201904
  2. DARZALEX [Suspect]
     Active Substance: DARATUMUMAB
     Dosage: VIAL??NDC/PRESCRIPTION NUMBER?5789450220/23601A/ N/A
     Route: 042
     Dates: start: 201904
  3. KYPROLIS [Concomitant]
     Active Substance: CARFILZOMIB
     Indication: PRODUCT USED FOR UNKNOWN INDICATION
     Route: 065

REACTIONS (3)
  - Cough [Unknown]
  - Wheezing [Unknown]
  - Dyspnoea [Unknown]

NARRATIVE: CASE EVENT DATE: 202002
